FAERS Safety Report 22635221 (Version 1)
Quarter: 2023Q2

REPORT INFORMATION
  Report Type: Spontaneous
  Country: GB (occurrence: GB)
  Receive Date: 20230623
  Receipt Date: 20230623
  Transmission Date: 20230722
  Serious: Yes (Other)
  Sender: FDA-Public Use
  Company Number: GB-MHRA-MED-202306192116344970-WDGLS

PATIENT
  Age: 56 Year
  Sex: Female
  Weight: 55 kg

DRUGS (4)
  1. SERTRALINE [Suspect]
     Active Substance: SERTRALINE HYDROCHLORIDE
     Indication: Adjustment disorder with depressed mood
     Dosage: 150 MILLIGRAM, QD (150MG DAILY)
     Route: 065
     Dates: start: 20170601
  2. SERTRALINE HYDROCHLORIDE [Suspect]
     Active Substance: SERTRALINE HYDROCHLORIDE
     Indication: Mood swings
     Dosage: 150 MILLIGRAM, QD (150MG ONCE DAILY)
     Route: 065
     Dates: start: 20170601
  3. SERTRALINE HYDROCHLORIDE [Suspect]
     Active Substance: SERTRALINE HYDROCHLORIDE
     Indication: Depression
  4. SERTRALINE HYDROCHLORIDE [Suspect]
     Active Substance: SERTRALINE HYDROCHLORIDE
     Indication: Anxiety

REACTIONS (1)
  - Amnesia [Not Recovered/Not Resolved]

NARRATIVE: CASE EVENT DATE: 20200101
